FAERS Safety Report 13761696 (Version 2)
Quarter: 2017Q3

REPORT INFORMATION
  Report Type: Spontaneous
  Country: BE (occurrence: BE)
  Receive Date: 20170718
  Receipt Date: 20170824
  Transmission Date: 20171127
  Serious: Yes (Hospitalization)
  Sender: FDA-Public Use
  Company Number: BE-AUROBINDO-AUR-APL-2017-36893

PATIENT
  Age: 70 Year
  Sex: Male

DRUGS (1)
  1. AMIODARONE [Suspect]
     Active Substance: AMIODARONE
     Indication: ATRIAL FIBRILLATION
     Route: 065

REACTIONS (9)
  - Respiratory depression [Recovered/Resolved]
  - Fall [Recovered/Resolved]
  - Myxoedema coma [Recovered/Resolved]
  - Dysphonia [Recovered/Resolved]
  - Respiratory acidosis [Recovered/Resolved]
  - Altered state of consciousness [Recovered/Resolved]
  - Hypothermia [Recovered/Resolved]
  - Microcytic anaemia [Recovered/Resolved]
  - Bradycardia [Recovered/Resolved]
